FAERS Safety Report 13662121 (Version 1)
Quarter: 2017Q2

REPORT INFORMATION
  Report Type: Spontaneous
  Country: US (occurrence: US)
  Receive Date: 20170616
  Receipt Date: 20170616
  Transmission Date: 20170830
  Serious: No
  Sender: FDA-Public Use
  Company Number: US-BAXALTA-2017BLT005752

PATIENT
  Age: 17 Year
  Sex: Female
  Weight: 45.81 kg

DRUGS (1)
  1. CUVITRU [Suspect]
     Active Substance: HUMAN IMMUNOGLOBULIN G
     Indication: PRODUCT USED FOR UNKNOWN INDICATION
     Dosage: 6 G, 1X A WEEK
     Route: 058

REACTIONS (5)
  - Fluid overload [Unknown]
  - Skin tightness [Unknown]
  - Infusion site pain [Unknown]
  - Infusion site erythema [Unknown]
  - Fatigue [Unknown]
